FAERS Safety Report 7778328-7 (Version None)
Quarter: 2011Q3

REPORT INFORMATION
  Report Type: 
  Country: None (occurrence: None)
  Receive Date: 20110926
  Receipt Date: 20110912
  Transmission Date: 20111222
  Serious: Yes (Other)
  Sender: FDA-Public Use
  Company Number: US-BAYER-2011-013959

PATIENT
  Age: 28 Year
  Sex: Female
  Weight: 58.6 kg

DRUGS (7)
  1. MAGNESIUM HYDROXIDE TAB [Concomitant]
     Indication: GASTROOESOPHAGEAL REFLUX DISEASE
     Dosage: UNK UNK, PRN
     Route: 048
  2. NEXIUM [Concomitant]
     Indication: OESOPHAGITIS
     Dosage: 40 MG, QD
  3. TUMS [CALCIUM CARBONATE] [Concomitant]
     Indication: GASTROOESOPHAGEAL REFLUX DISEASE
     Dosage: UNK UNK, PRN
     Route: 048
  4. YASMIN [Suspect]
     Indication: CONTRACEPTION
     Dosage: UNK
     Dates: start: 20050101, end: 20090501
  5. DROSPIRENONE AND ETHINYL ESTRADIOL [Suspect]
     Indication: CONTRACEPTION
     Dosage: UNK
     Dates: start: 20050101, end: 20090101
  6. LEVOTHYROXINE SODIUM [Concomitant]
     Indication: HYPOTHYROIDISM
     Dosage: 50 MCG/24HR, QD
     Route: 048
     Dates: start: 20081001
  7. CIPROFLOXACIN [Concomitant]
     Indication: URINARY TRACT INFECTION
     Dosage: 500 MG, BID

REACTIONS (4)
  - ANXIETY [None]
  - CHOLECYSTITIS CHRONIC [None]
  - ABDOMINAL PAIN [None]
  - INJURY [None]
